FAERS Safety Report 19376452 (Version 2)
Quarter: 2021Q3

REPORT INFORMATION
  Report Type: Spontaneous
  Country: US (occurrence: US)
  Receive Date: 20210604
  Receipt Date: 20210701
  Transmission Date: 20211014
  Serious: Yes (Other)
  Sender: FDA-Public Use
  Company Number: US-ALLERGAN-2120837US

PATIENT
  Sex: Female
  Weight: 79.37 kg

DRUGS (4)
  1. ARMOUR THYROID [Suspect]
     Active Substance: THYROID, PORCINE
     Indication: HYPOTHYROIDISM
     Dosage: 30 MG, QD
     Dates: start: 20210525, end: 20210526
  2. TIROSINT [Concomitant]
     Active Substance: LEVOTHYROXINE SODIUM
     Indication: HYPOTHYROIDISM
     Dosage: 100 ?G, QAM
  3. BIOIDENTICAL HORMONE CREAMS [Concomitant]
     Indication: MENOPAUSE
  4. PROPRANOLOL HCL [Concomitant]
     Active Substance: PROPRANOLOL HYDROCHLORIDE
     Indication: TREMOR
     Dosage: 10 MG, QD
     Dates: start: 20201204

REACTIONS (9)
  - Blood pressure increased [Recovering/Resolving]
  - Nausea [Recovered/Resolved]
  - Dizziness [Recovered/Resolved]
  - Gait inability [Recovering/Resolving]
  - Product dispensing error [Unknown]
  - Balance disorder [Recovered/Resolved]
  - Ear discomfort [Recovering/Resolving]
  - Vertigo [Recovered/Resolved]
  - Headache [Recovered/Resolved]

NARRATIVE: CASE EVENT DATE: 20210525
